FAERS Safety Report 20346700 (Version 2)
Quarter: 2022Q2

REPORT INFORMATION
  Report Type: Spontaneous
  Country: FR (occurrence: FR)
  Receive Date: 20220118
  Receipt Date: 20220420
  Transmission Date: 20220720
  Serious: Yes (Hospitalization)
  Sender: FDA-Public Use
  Company Number: None

PATIENT
  Age: 57 Year
  Sex: Female
  Weight: 58 kg

DRUGS (8)
  1. RISPERIDONE [Suspect]
     Active Substance: RISPERIDONE
     Indication: Product used for unknown indication
     Dosage: 2 MILLIGRAM, QD
     Route: 048
     Dates: start: 20211212, end: 20211228
  2. TEGRETOL [Suspect]
     Active Substance: CARBAMAZEPINE
     Indication: Behaviour disorder
     Dosage: 400 MILLIGRAM, BID (400 MG TWICE A DAY)
     Route: 048
     Dates: start: 20211109, end: 202112
  3. OXAZEPAM [Suspect]
     Active Substance: OXAZEPAM
     Indication: Product used for unknown indication
     Dosage: 40 MILLIGRAM, QD
     Route: 048
     Dates: start: 20211212
  4. RAMIPRIL [Concomitant]
     Active Substance: RAMIPRIL
     Dosage: UNK
  5. QUETIAPINE [Concomitant]
     Active Substance: QUETIAPINE
     Indication: Product used for unknown indication
     Dosage: UNK
  6. DIAZEPAM [Concomitant]
     Active Substance: DIAZEPAM
     Dosage: UNK
  7. MIRTAZAPINE [Concomitant]
     Active Substance: MIRTAZAPINE
     Dosage: UNK
  8. OXAZEPAM [Concomitant]
     Active Substance: OXAZEPAM
     Dosage: UNK

REACTIONS (1)
  - Drug reaction with eosinophilia and systemic symptoms [Recovering/Resolving]

NARRATIVE: CASE EVENT DATE: 20211217
